FAERS Safety Report 13712445 (Version 1)
Quarter: 2017Q3

REPORT INFORMATION
  Report Type: Spontaneous
  Country: US (occurrence: US)
  Receive Date: 20170703
  Receipt Date: 20170703
  Transmission Date: 20171127
  Serious: No
  Sender: FDA-Public Use
  Company Number: US-JNJFOC-20170429241

PATIENT
  Age: 81 Year
  Sex: Male
  Weight: 77.11 kg

DRUGS (3)
  1. STELARA [Suspect]
     Active Substance: USTEKINUMAB
     Indication: PSORIASIS
     Dosage: FIRST INJECTION FOR LOADING DOSE.
     Route: 058
     Dates: start: 20170420, end: 20170420
  2. CLOBETASOL [Suspect]
     Active Substance: CLOBETASOL
     Indication: PRODUCT USED FOR UNKNOWN INDICATION
     Route: 061
  3. BETAMETHASONE DIPROPRIONATE [Concomitant]
     Dosage: BID
     Route: 061
     Dates: start: 20170421, end: 20170422

REACTIONS (8)
  - Oropharyngeal discomfort [Recovered/Resolved]
  - Pharyngeal oedema [Unknown]
  - Wheezing [Recovered/Resolved]
  - Drug hypersensitivity [Recovered/Resolved]
  - Somnolence [Recovered/Resolved]
  - Blister [Recovered/Resolved]
  - Throat tightness [Recovered/Resolved]
  - Lethargy [Recovered/Resolved]

NARRATIVE: CASE EVENT DATE: 201704
